FAERS Safety Report 8321755-X (Version None)
Quarter: 2012Q2

REPORT INFORMATION
  Report Type: 
  Country: None (occurrence: None)
  Receive Date: 20120430
  Receipt Date: 20091228
  Transmission Date: 20120825
  Serious: No
  Sender: FDA-Public Use
  Company Number: US-TEVA-2009029167

PATIENT
  Sex: Female
  Weight: 75.364 kg

DRUGS (4)
  1. PREVACID [Concomitant]
  2. LUNESTA [Suspect]
  3. NUVIGIL [Suspect]
     Indication: SOMNOLENCE
     Dosage: 150 MILLIGRAM;
     Route: 048
     Dates: start: 20091001
  4. ESTRACE [Concomitant]

REACTIONS (4)
  - OROPHARYNGEAL BLISTERING [None]
  - RASH [None]
  - BLISTER [None]
  - EYE SWELLING [None]
